FAERS Safety Report 18462569 (Version 15)
Quarter: 2022Q3

REPORT INFORMATION
  Report Type: Spontaneous
  Country: US (occurrence: US)
  Receive Date: 20201104
  Receipt Date: 20220901
  Transmission Date: 20221027
  Serious: Yes (Other)
  Sender: FDA-Public Use
  Company Number: US-GLAXOSMITHKLINE-US2020AMR218575

PATIENT

DRUGS (20)
  1. ZEJULA [Suspect]
     Active Substance: NIRAPARIB
     Indication: Ovarian cancer
     Dosage: 100 MG, QD
     Dates: start: 20201021
  2. ZEJULA [Suspect]
     Active Substance: NIRAPARIB
     Dosage: 200 MG, QD
     Dates: start: 20201022
  3. ZEJULA [Suspect]
     Active Substance: NIRAPARIB
     Dosage: 300 MG, QD
     Dates: start: 20210205
  4. ZEJULA [Suspect]
     Active Substance: NIRAPARIB
     Dosage: 300 MG, QD
     Dates: start: 20210219
  5. ZEJULA [Suspect]
     Active Substance: NIRAPARIB
     Dosage: 200 MG, QD
     Route: 048
     Dates: start: 202103
  6. ZEJULA [Suspect]
     Active Substance: NIRAPARIB
     Dosage: 100 MG, QD
     Route: 048
     Dates: start: 20210506
  7. ZEJULA [Suspect]
     Active Substance: NIRAPARIB
     Dosage: UNK, Z (100MG ALTERNATING WITH 200MG DAILY)
  8. ZEJULA [Suspect]
     Active Substance: NIRAPARIB
     Dosage: UNK, Z (100MG ALTERNATING WITH 200MG EVERY OTHER DAY)
  9. ZEJULA [Suspect]
     Active Substance: NIRAPARIB
     Dosage: 200 MG, QD
     Dates: start: 20220213
  10. ZEJULA [Suspect]
     Active Substance: NIRAPARIB
     Dosage: 100 MG, QD
  11. ZEJULA [Suspect]
     Active Substance: NIRAPARIB
     Dosage: 200 MG, QD
     Dates: end: 20220809
  12. COVID-19 VACCINE NOS [Suspect]
     Active Substance: COVID-19 VACCINE NOS
     Indication: COVID-19 prophylaxis
     Dosage: UNK
  13. LOVENOX (ENOXAPARIN SODIC) [Concomitant]
     Indication: Product used for unknown indication
     Dosage: UNK
     Dates: end: 202206
  14. DILANTIN [Concomitant]
     Active Substance: PHENYTOIN
     Indication: Product used for unknown indication
     Dosage: UNK
  15. PRIMIDONE [Concomitant]
     Active Substance: PRIMIDONE
     Indication: Product used for unknown indication
     Dosage: UNK
  16. LEVOTHYROXINE [Concomitant]
     Active Substance: LEVOTHYROXINE
     Indication: Product used for unknown indication
     Dosage: UNK
  17. LEXAPRO [Concomitant]
     Active Substance: ESCITALOPRAM OXALATE
     Indication: Product used for unknown indication
     Dosage: UNK
  18. AVASTIN [Concomitant]
     Active Substance: BEVACIZUMAB
     Indication: Product used for unknown indication
     Dosage: UNK, Z (EVERY 3 WEEKS)
  19. COENZYME Q10 [Concomitant]
     Active Substance: DIETARY SUPPLEMENT\UBIDECARENONE
     Indication: Product used for unknown indication
     Dosage: UNK
  20. WARFARIN [Concomitant]
     Active Substance: WARFARIN
     Indication: Product used for unknown indication
     Dosage: UNK

REACTIONS (35)
  - Neuropathy peripheral [Not Recovered/Not Resolved]
  - Dyspnoea exertional [Unknown]
  - Chest discomfort [Unknown]
  - Blood pressure increased [Not Recovered/Not Resolved]
  - Heart rate increased [Not Recovered/Not Resolved]
  - Dyspnoea [Not Recovered/Not Resolved]
  - Nasal congestion [Not Recovered/Not Resolved]
  - Constipation [Recovering/Resolving]
  - Malaise [Unknown]
  - Vomiting [Unknown]
  - Nausea [Recovering/Resolving]
  - Dry skin [Unknown]
  - Asthenia [Unknown]
  - Fatigue [Not Recovered/Not Resolved]
  - Shoulder operation [Unknown]
  - Blood folate decreased [Unknown]
  - Vitamin B12 decreased [Unknown]
  - Serum ferritin increased [Unknown]
  - Influenza like illness [Unknown]
  - Hot flush [Recovered/Resolved]
  - Fall [Unknown]
  - Head injury [Unknown]
  - Headache [Unknown]
  - Dizziness [Unknown]
  - Hypertension [Recovering/Resolving]
  - Folliculitis [Recovering/Resolving]
  - Dry mouth [Recovered/Resolved]
  - Pain in extremity [Not Recovered/Not Resolved]
  - Decreased activity [Unknown]
  - Drug intolerance [Unknown]
  - Limb operation [Recovered/Resolved]
  - Gastric disorder [Not Recovered/Not Resolved]
  - Intentional dose omission [Unknown]
  - Intentional product misuse [Unknown]
  - Off label use [Not Recovered/Not Resolved]

NARRATIVE: CASE EVENT DATE: 20201201
